FAERS Safety Report 23514043 (Version 1)
Quarter: 2024Q1

REPORT INFORMATION
  Report Type: Spontaneous
  Country: GB (occurrence: GB)
  Receive Date: 20240212
  Receipt Date: 20240212
  Transmission Date: 20240410
  Serious: Yes (Other)
  Sender: FDA-Public Use
  Company Number: None

PATIENT
  Sex: Female

DRUGS (1)
  1. MONTELUKAST [Suspect]
     Active Substance: MONTELUKAST SODIUM
     Indication: Product used for unknown indication
     Dosage: UNK
     Route: 065

REACTIONS (8)
  - Joint swelling [Unknown]
  - Ear pain [Unknown]
  - Sinus pain [Unknown]
  - Oropharyngeal pain [Unknown]
  - Arthritis [Unknown]
  - Phlebitis [Not Recovered/Not Resolved]
  - Neuropathy peripheral [Unknown]
  - Suicidal ideation [Unknown]
